FAERS Safety Report 18640585 (Version 4)
Quarter: 2023Q1

REPORT INFORMATION
  Report Type: Report from Study
  Country: IL (occurrence: IL)
  Receive Date: 20201221
  Receipt Date: 20230313
  Transmission Date: 20230418
  Serious: Yes (Death, Hospitalization, Disabling, Other)
  Sender: FDA-Public Use
  Company Number: IL-ABBVIE-20K-082-3695335-00

PATIENT
  Age: 67 Year
  Sex: Female
  Weight: 42 kg

DRUGS (28)
  1. VENETOCLAX [Suspect]
     Active Substance: VENETOCLAX
     Indication: Acute myeloid leukaemia
     Dosage: TIME INTERVAL: 1 TOTAL: 200 MILLIGRAM, DURATION TEXT: RAMP UP
     Route: 048
     Dates: start: 20200217, end: 20200217
  2. VENETOCLAX [Suspect]
     Active Substance: VENETOCLAX
     Indication: Acute myeloid leukaemia
     Dosage: 400 MILLIGRAM, DURATION TEXT: RAMP UP
     Route: 048
     Dates: start: 20200218, end: 20201216
  3. VENETOCLAX [Suspect]
     Active Substance: VENETOCLAX
     Indication: Acute myeloid leukaemia
     Dosage: 100 MILLIGRAM
     Route: 048
     Dates: start: 20200216, end: 20200216
  4. AZACITIDINE [Suspect]
     Active Substance: AZACITIDINE
     Indication: Acute myeloid leukaemia
     Dosage: 100 MILLIGRAM,  DURATION TEXT: CYCLE 1
     Route: 058
     Dates: start: 20200216, end: 20200224
  5. AZACITIDINE [Suspect]
     Active Substance: AZACITIDINE
     Indication: Acute myeloid leukaemia
     Dosage: 100 MILLIGRAM,  DURATION TEXT: CYCLE 2
     Route: 058
     Dates: start: 20200315, end: 20200323
  6. AZACITIDINE [Suspect]
     Active Substance: AZACITIDINE
     Indication: Acute myeloid leukaemia
     Dosage: 100 MILLIGRAM,  DURATION TEXT: CYCLE 3
     Route: 058
     Dates: start: 20200419, end: 20200427
  7. AZACITIDINE [Suspect]
     Active Substance: AZACITIDINE
     Indication: Acute myeloid leukaemia
     Dosage: 100 MILLIGRAM,  DURATION TEXT: CYCLE 4
     Route: 058
     Dates: start: 20200524, end: 20200602
  8. AZACITIDINE [Suspect]
     Active Substance: AZACITIDINE
     Indication: Acute myeloid leukaemia
     Dosage: 100 MILLIGRAM,  DURATION TEXT: CYCLE 5
     Route: 058
     Dates: start: 20200628, end: 20200706
  9. AZACITIDINE [Suspect]
     Active Substance: AZACITIDINE
     Indication: Acute myeloid leukaemia
     Dosage: 100 MILLIGRAM,  DURATION TEXT: CYCLE 6
     Route: 058
     Dates: start: 20200802, end: 20200810
  10. AZACITIDINE [Suspect]
     Active Substance: AZACITIDINE
     Indication: Acute myeloid leukaemia
     Dosage: 100 MILLIGRAM,  DURATION TEXT: CYCLE 7
     Route: 058
     Dates: start: 20200906, end: 20200914
  11. AZACITIDINE [Suspect]
     Active Substance: AZACITIDINE
     Indication: Acute myeloid leukaemia
     Dosage: 100 MILLIGRAM,  DURATION TEXT: CYCLE 8
     Route: 058
     Dates: start: 20201018, end: 20201026
  12. AZACITIDINE [Suspect]
     Active Substance: AZACITIDINE
     Indication: Acute myeloid leukaemia
     Dosage: 100 MILLIGRAM,  DURATION TEXT: CYCLE 9
     Route: 058
     Dates: start: 20201122, end: 20201130
  13. HYDROXYUREA [Suspect]
     Active Substance: HYDROXYUREA
     Indication: Acute myeloid leukaemia
     Dosage: 500 MILLIGRAM
     Route: 048
     Dates: start: 20171102, end: 20200216
  14. ATENOLOL [Concomitant]
     Active Substance: ATENOLOL
     Indication: Cardiac disorder
     Route: 065
  15. ENALAPRIL MALEATE [Concomitant]
     Active Substance: ENALAPRIL MALEATE
     Indication: Hypertension
     Route: 065
  16. OMEPRAZOLE [Concomitant]
     Active Substance: OMEPRAZOLE
     Indication: Gastrooesophageal reflux disease
     Route: 065
  17. Fusid [Concomitant]
     Indication: Renal failure
     Route: 065
  18. CRESTOR [Concomitant]
     Active Substance: ROSUVASTATIN CALCIUM
     Indication: Hypertension
     Route: 065
  19. HYDROXYUREA [Concomitant]
     Active Substance: HYDROXYUREA
     Indication: Polycythaemia vera
     Route: 065
  20. ASPIRIN [Concomitant]
     Active Substance: ASPIRIN
     Indication: Cardiac disorder
     Route: 065
  21. NORVASC [Concomitant]
     Active Substance: AMLODIPINE BESYLATE
     Indication: Cardiac disorder
     Route: 065
  22. ISOSORBIDE MONONITRATE [Concomitant]
     Active Substance: ISOSORBIDE MONONITRATE
     Indication: Cardiac disorder
     Route: 065
  23. Amlo [Concomitant]
     Indication: Hypertension
     Route: 065
  24. LEVOTHYROXINE [Concomitant]
     Active Substance: LEVOTHYROXINE
     Indication: Thyroid disorder
     Route: 065
  25. ENALAPRIL [Concomitant]
     Active Substance: ENALAPRIL
     Indication: Hypertension
     Route: 065
  26. ISOSORBIDE DINITRATE [Concomitant]
     Active Substance: ISOSORBIDE DINITRATE
     Indication: Cardiac disorder
     Route: 065
  27. Rafassal [Concomitant]
     Indication: Renal failure
     Route: 065
  28. Pramin [Concomitant]
     Indication: Nausea
     Route: 065
     Dates: start: 20200223

REACTIONS (4)
  - Septic shock [Fatal]
  - Sepsis [Fatal]
  - Hypoxia [Not Recovered/Not Resolved]
  - Diarrhoea [Not Recovered/Not Resolved]

NARRATIVE: CASE EVENT DATE: 20201213
